FAERS Safety Report 7773144-4 (Version None)
Quarter: 2011Q3

REPORT INFORMATION
  Report Type: 
  Country: None (occurrence: None)
  Receive Date: 20110922
  Receipt Date: 20110613
  Transmission Date: 20111222
  Serious: No
  Sender: FDA-Public Use
  Company Number: US-ASTRAZENECA-2011SE36248

PATIENT
  Age: 74 Year
  Sex: Male

DRUGS (13)
  1. SEROQUEL [Suspect]
     Route: 048
     Dates: start: 20110503
  2. ASPIRIN [Concomitant]
     Route: 048
     Dates: start: 20110503
  3. GALANTAMINE HYDROBROMIDE [Concomitant]
     Route: 048
     Dates: start: 20110503
  4. VICODIN [Concomitant]
     Dosage: 10/325 MG ONE TAB ORAL EVERY 8 HOURS
     Route: 048
     Dates: start: 20110503
  5. MOBIC [Concomitant]
     Route: 048
     Dates: start: 20110503
  6. SCLAVO TEST PPD [Concomitant]
     Route: 030
  7. FLUSHIELD [Concomitant]
     Route: 030
  8. DOCUSATE SODIUM [Concomitant]
     Route: 048
     Dates: start: 20110523
  9. SEROQUEL [Suspect]
     Indication: AGITATION
     Route: 048
     Dates: start: 20110503
  10. OMEPRAZOLE [Suspect]
     Indication: AGITATION
     Route: 048
  11. DEPAKOTE [Concomitant]
     Route: 048
     Dates: start: 20110503
  12. SIMVASTATIN [Concomitant]
     Route: 048
     Dates: start: 20110503
  13. PNEUMOCOCCAL VACCINE [Concomitant]
     Route: 030

REACTIONS (10)
  - DYSPNOEA [None]
  - WHEEZING [None]
  - DECREASED APPETITE [None]
  - AGGRESSION [None]
  - OFF LABEL USE [None]
  - ABNORMAL BEHAVIOUR [None]
  - PAIN [None]
  - CONSTIPATION [None]
  - RASH [None]
  - CRYING [None]
